FAERS Safety Report 19400495 (Version 1)
Quarter: 2021Q2

REPORT INFORMATION
  Report Type: Spontaneous
  Country: DE (occurrence: DE)
  Receive Date: 20210610
  Receipt Date: 20210610
  Transmission Date: 20210717
  Serious: Yes (Other)
  Sender: FDA-Public Use
  Company Number: DE-TEVA-2021-DE-1920073

PATIENT
  Age: 44 Year
  Sex: Female

DRUGS (11)
  1. DINITROBENZENE [DINITROCHLOROBENZENE] [Suspect]
     Active Substance: DINITROCHLOROBENZENE
     Indication: METASTASES TO LYMPH NODES
     Route: 061
  2. CARBOPLATIN. [Suspect]
     Active Substance: CARBOPLATIN
     Indication: METASTASES TO LYMPH NODES
     Route: 065
  3. COBIMETINIB. [Suspect]
     Active Substance: COBIMETINIB
     Indication: METASTASES TO LYMPH NODES
     Route: 065
  4. IPILIMUMAB [Suspect]
     Active Substance: IPILIMUMAB
     Indication: METASTASES TO LYMPH NODES
     Dosage: INITIALLY RECEIVED 4 CYCLES; THE TREATMENT WAS COMPLETED AND LATER RESUMED ALONGSIDE PEMBROLIZUMAB
     Route: 065
  5. PEMBROLIZUMAB. [Suspect]
     Active Substance: PEMBROLIZUMAB
     Indication: METASTASES TO LYMPH NODES
     Route: 065
  6. TRAMETINIB [Suspect]
     Active Substance: TRAMETINIB
     Indication: METASTASES TO LYMPH NODES
     Route: 065
  7. DABRAFENIB [Suspect]
     Active Substance: DABRAFENIB
     Indication: METASTASES TO LYMPH NODES
     Route: 065
  8. PACLITAXEL. [Suspect]
     Active Substance: PACLITAXEL
     Indication: METASTASES TO LYMPH NODES
     Route: 065
  9. INTERFERON?ALPHA [Suspect]
     Active Substance: INTERFERON ALFA-2A OR INTERFERON ALFA-2B
     Indication: METASTASES TO LYMPH NODES
     Route: 065
  10. DACARBAZINE. [Suspect]
     Active Substance: DACARBAZINE
     Indication: METASTASES TO LYMPH NODES
     Route: 065
  11. VEMURAFENIB. [Suspect]
     Active Substance: VEMURAFENIB
     Indication: METASTASES TO LYMPH NODES
     Route: 065

REACTIONS (2)
  - Erysipelas [Unknown]
  - Drug ineffective [Unknown]
